FAERS Safety Report 9319700 (Version 1)
Quarter: 2013Q1

REPORT INFORMATION
  Report Type: Spontaneous
  Country: US (occurrence: None)
  Receive Date: 20121210
  Receipt Date: 20121210
  Transmission Date: 20140127
  Serious: Yes (Other)
  Sender: FDA-Public Use
  Company Number: US-LHC-2012043

PATIENT
  Age: 37 Year
  Sex: Female

DRUGS (1)
  1. CARBON DIOXIDE [Suspect]
     Indication: LAPAROSCOPIC SURGERY

REACTIONS (3)
  - Crepitations [None]
  - Subcutaneous emphysema [None]
  - Hypercapnia [None]
